FAERS Safety Report 13564304 (Version 1)
Quarter: 2017Q2

REPORT INFORMATION
  Report Type: Spontaneous
  Country: US (occurrence: US)
  Receive Date: 20170519
  Receipt Date: 20170519
  Transmission Date: 20170830
  Serious: No
  Sender: FDA-Public Use
  Company Number: US-PFIZER INC-2017217370

PATIENT
  Age: 50 Year
  Sex: Male
  Weight: 63.5 kg

DRUGS (4)
  1. ATRIPLA [Concomitant]
     Active Substance: EFAVIRENZ\EMTRICITABINE\TENOFOVIR DISOPROXIL FUMARATE
     Indication: HIV TEST POSITIVE
     Dosage: 1 DF, DAILY
     Route: 048
     Dates: start: 2006
  2. ATIVAN [Concomitant]
     Active Substance: LORAZEPAM
  3. NEURONTIN [Suspect]
     Active Substance: GABAPENTIN
     Indication: NEURALGIA
     Dosage: 100 MG, 3X/DAY (100MG, CAPSULES)
     Route: 048
     Dates: start: 201607, end: 201607
  4. LOPID [Concomitant]
     Active Substance: GEMFIBROZIL
     Indication: HYPERLIPIDAEMIA
     Dosage: 600 MG, 2X/DAY (600MG, TABLETS, BY MOUTH, TWICE A DAY)
     Route: 048

REACTIONS (2)
  - Paraesthesia [Recovered/Resolved]
  - Nightmare [Recovered/Resolved]

NARRATIVE: CASE EVENT DATE: 201607
